FAERS Safety Report 21104306 (Version 1)
Quarter: 2022Q3

REPORT INFORMATION
  Report Type: Spontaneous
  Country: US (occurrence: US)
  Receive Date: 20220720
  Receipt Date: 20220720
  Transmission Date: 20221027
  Serious: Yes (Other)
  Sender: FDA-Public Use
  Company Number: US-INCYTE CORPORATION-2022IN007012

PATIENT

DRUGS (1)
  1. JAKAFI [Suspect]
     Active Substance: RUXOLITINIB
     Indication: Leukaemia
     Dosage: 15 MILLIGRAM, BID
     Route: 048
     Dates: start: 20220714

REACTIONS (2)
  - Skin cancer [Unknown]
  - Off label use [Unknown]

NARRATIVE: CASE EVENT DATE: 20220714
